FAERS Safety Report 17477624 (Version 2)
Quarter: 2020Q4

REPORT INFORMATION
  Report Type: Report from Study
  Country: None (occurrence: US)
  Receive Date: 20200228
  Receipt Date: 20201218
  Transmission Date: 20210113
  Serious: Yes (Hospitalization, Other)
  Sender: FDA-Public Use
  Company Number: US-ABBVIE-20K-163-3239267-00

PATIENT
  Age: 74 Year
  Sex: Male
  Weight: 95.34 kg

DRUGS (5)
  1. TAMSULOSIN [Concomitant]
     Active Substance: TAMSULOSIN
     Indication: PRODUCT USED FOR UNKNOWN INDICATION
  2. PYRIDOSTIGMINE [Concomitant]
     Active Substance: PYRIDOSTIGMINE
     Indication: PRODUCT USED FOR UNKNOWN INDICATION
  3. MESTINON [Concomitant]
     Active Substance: PYRIDOSTIGMINE BROMIDE
     Indication: MYASTHENIA GRAVIS
  4. HUMIRA [Suspect]
     Active Substance: ADALIMUMAB
     Indication: PSORIATIC ARTHROPATHY
     Route: 058
     Dates: start: 2018
  5. GABAPENTIN. [Concomitant]
     Active Substance: GABAPENTIN
     Indication: PRODUCT USED FOR UNKNOWN INDICATION

REACTIONS (8)
  - Gait disturbance [Recovering/Resolving]
  - Arthralgia [Unknown]
  - Intervertebral disc protrusion [Recovering/Resolving]
  - Drug ineffective [Unknown]
  - Back pain [Unknown]
  - CSF volume decreased [Recovering/Resolving]
  - Nerve compression [Recovering/Resolving]
  - Bladder disorder [Unknown]

NARRATIVE: CASE EVENT DATE: 201909
